FAERS Safety Report 11702214 (Version 2)
Quarter: 2015Q4

REPORT INFORMATION
  Report Type: Report from Study
  Country: JP (occurrence: JP)
  Receive Date: 20151105
  Receipt Date: 20151110
  Transmission Date: 20160304
  Serious: Yes (Other)
  Sender: FDA-Public Use
  Company Number: JP-PFIZER INC-2015367987

PATIENT
  Age: 21 Year
  Sex: Female

DRUGS (1)
  1. BACAMPICILLIN HCL [Suspect]
     Active Substance: BACAMPICILLIN HYDROCHLORIDE
     Indication: UPPER RESPIRATORY TRACT INFECTION
     Dosage: UNK

REACTIONS (1)
  - Oesophageal ulcer [Recovered/Resolved]
